FAERS Safety Report 14246155 (Version 1)
Quarter: 2017Q4

REPORT INFORMATION
  Report Type: Spontaneous
  Country: FR (occurrence: FR)
  Receive Date: 20171204
  Receipt Date: 20171204
  Transmission Date: 20180321
  Serious: Yes (Other)
  Sender: FDA-Public Use
  Company Number: FR-MERCK KGAA-2036540

PATIENT
  Age: 57 Year
  Sex: Female

DRUGS (1)
  1. NOVOTHYROX [Suspect]
     Active Substance: LEVOTHYROXINE SODIUM
     Indication: PRODUCT USED FOR UNKNOWN INDICATION

REACTIONS (22)
  - Disturbance in attention [None]
  - Feeling abnormal [None]
  - Asthenia [None]
  - Irritability [None]
  - Blood glucose increased [None]
  - Nervousness [None]
  - Fatigue [None]
  - Blood creatine increased [None]
  - Insomnia [None]
  - Hot flush [None]
  - Mood altered [None]
  - Loss of personal independence in daily activities [None]
  - Myalgia [None]
  - Confusional state [None]
  - Amnesia [None]
  - Decreased appetite [None]
  - Headache [None]
  - Blood thyroid stimulating hormone decreased [None]
  - Suicidal ideation [None]
  - Laziness [None]
  - Vertigo [None]
  - Blood triglycerides abnormal [None]

NARRATIVE: CASE EVENT DATE: 20170828
